FAERS Safety Report 6033416-0 (Version None)
Quarter: 2009Q1

REPORT INFORMATION
  Report Type: 
  Country: None (occurrence: None)
  Receive Date: 20090108
  Receipt Date: 20080829
  Transmission Date: 20090719
  Serious: Yes (Hospitalization)
  Sender: FDA-Public Use
  Company Number: 08H-163-0314832-00

PATIENT
  Age: 62 Year
  Sex: Female
  Weight: 81 kg

DRUGS (10)
  1. VANCOMYCIN HCL [Suspect]
     Indication: OSTEOMYELITIS CHRONIC
     Dosage: INTRAVENOUS
     Route: 042
     Dates: start: 20080108, end: 20080201
  2. VANCOMYCIN HCL [Suspect]
     Indication: OSTEOMYELITIS CHRONIC
     Dosage: INTRAVENOUS
     Route: 042
     Dates: start: 20080108, end: 20080201
  3. VANCOMYCIN HCL [Suspect]
     Indication: OSTEOMYELITIS CHRONIC
     Dates: start: 20080108, end: 20080201
  4. EVISTA [Concomitant]
  5. LYRICA [Concomitant]
  6. ASPIRIN [Concomitant]
  7. FISH OIL (FISH OIL) [Concomitant]
  8. PREDNISONE TAB [Concomitant]
  9. LEVAQUIN [Concomitant]
  10. RELAFEN [Concomitant]

REACTIONS (1)
  - DRUG ERUPTION [None]
